FAERS Safety Report 16381507 (Version 1)
Quarter: 2019Q2

REPORT INFORMATION
  Report Type: Spontaneous
  Country: US (occurrence: US)
  Receive Date: 20190603
  Receipt Date: 20190603
  Transmission Date: 20190711
  Serious: No
  Sender: FDA-Public Use
  Company Number: US-BIOGEN-2019BI00735123

PATIENT
  Sex: Female

DRUGS (1)
  1. TYSABRI [Suspect]
     Active Substance: NATALIZUMAB
     Indication: MULTIPLE SCLEROSIS
     Route: 042
     Dates: start: 20190503

REACTIONS (6)
  - Sciatica [Unknown]
  - Pruritus [Unknown]
  - Pain in extremity [Unknown]
  - Abdominal pain upper [Unknown]
  - Dizziness [Unknown]
  - Balance disorder [Unknown]
